FAERS Safety Report 25436617 (Version 3)
Quarter: 2025Q3

REPORT INFORMATION
  Report Type: Report from Study
  Country: EU (occurrence: EU)
  Receive Date: 20250614
  Receipt Date: 20250709
  Transmission Date: 20251021
  Serious: Yes (Other)
  Sender: ROCHE
  Company Number: EU-ROCHE-10000310447

PATIENT
  Age: 84 Year
  Sex: Male

DRUGS (5)
  1. VABYSMO [Suspect]
     Active Substance: FARICIMAB-SVOA
     Indication: Neovascular age-related macular degeneration
     Route: 050
     Dates: start: 20241104
  2. CHOLECALCIFEROL [Concomitant]
     Active Substance: CHOLECALCIFEROL
  3. INDAPEMID [Concomitant]
     Indication: Hypertension
  4. EZETEMIB SIMVASTATIN [Concomitant]
     Indication: Hypercholesterolaemia
  5. TEMISARTAN [Concomitant]
     Indication: Hypertension

REACTIONS (1)
  - Subretinal fibrosis [Unknown]

NARRATIVE: CASE EVENT DATE: 20250604
